FAERS Safety Report 7062559-8 (Version None)
Quarter: 2010Q4

REPORT INFORMATION
  Report Type: 
  Country: None (occurrence: None)
  Receive Date: 20101026
  Receipt Date: 20091120
  Transmission Date: 20110411
  Serious: No
  Sender: FDA-Public Use
  Company Number: US-PFIZER INC-2009301592

PATIENT
  Sex: Male
  Weight: 92.971 kg

DRUGS (3)
  1. LIPITOR [Suspect]
     Dosage: 20 MG, 1X/DAY
  2. METOPROLOL [Concomitant]
     Indication: HYPERTENSION
     Dosage: UNK
  3. GLIMEPIRIDE [Concomitant]
     Indication: DIABETES MELLITUS
     Dosage: UNK

REACTIONS (1)
  - DRUG INEFFECTIVE [None]
